FAERS Safety Report 7274799-3 (Version None)
Quarter: 2011Q1

REPORT INFORMATION
  Report Type: 
  Country: None (occurrence: None)
  Receive Date: 20110202
  Receipt Date: 20110202
  Transmission Date: 20110831
  Serious: Yes (Other)
  Sender: FDA-Public Use
  Company Number: None

PATIENT
  Sex: Female
  Weight: 61.2356 kg

DRUGS (1)
  1. CIPROFLOXACIN [Suspect]
     Indication: OROPHARYNGEAL PAIN

REACTIONS (4)
  - VISUAL ACUITY REDUCED [None]
  - RASH MACULO-PAPULAR [None]
  - LOCAL SWELLING [None]
  - SKIN EXFOLIATION [None]
